FAERS Safety Report 24223706 (Version 1)
Quarter: 2024Q3

REPORT INFORMATION
  Report Type: Spontaneous
  Country: US (occurrence: US)
  Receive Date: 20240819
  Receipt Date: 20240819
  Transmission Date: 20241017
  Serious: Yes (Other)
  Sender: INCYTE
  Company Number: US-INCYTE CORPORATION-2024IN008531

PATIENT

DRUGS (2)
  1. JAKAFI [Suspect]
     Active Substance: RUXOLITINIB
     Indication: Polycythaemia vera
     Dosage: UNK
     Route: 065
     Dates: start: 202306
  2. JAKAFI [Suspect]
     Active Substance: RUXOLITINIB
     Dosage: 20 MILLIGRAM, BID
     Route: 048
     Dates: start: 20240620

REACTIONS (6)
  - Basal cell carcinoma [Unknown]
  - Laboratory test abnormal [Unknown]
  - Splenomegaly [Unknown]
  - Fatigue [Unknown]
  - Pain [Unknown]
  - Contusion [Unknown]
